FAERS Safety Report 5451434-8 (Version None)
Quarter: 2007Q3

REPORT INFORMATION
  Report Type: 
  Country: None (occurrence: None)
  Receive Date: 20070913
  Receipt Date: 20070906
  Transmission Date: 20080115
  Serious: Yes (Hospitalization)
  Sender: FDA-Public Use
  Company Number: B0486794A

PATIENT
  Age: 78 Year
  Sex: Male

DRUGS (4)
  1. ROSIGLITAZONE [Suspect]
     Dosage: 4MG PER DAY
     Route: 048
     Dates: end: 20070820
  2. ARTHROTEC [Concomitant]
     Dosage: 50MG PER DAY
     Route: 048
  3. METFORMIN HCL [Concomitant]
     Dosage: 1G TWICE PER DAY
     Route: 048
  4. RAMIPRIL [Concomitant]
     Dosage: 10MG PER DAY
     Route: 048

REACTIONS (3)
  - OEDEMA [None]
  - OEDEMA PERIPHERAL [None]
  - SCROTAL SWELLING [None]
